FAERS Safety Report 8840373 (Version 1)
Quarter: 2012Q4

REPORT INFORMATION
  Report Type: 
  Country: US (occurrence: US)
  Receive Date: 20121015
  Receipt Date: 20121015
  Transmission Date: 20130627
  Serious: Yes (Other)
  Sender: FDA-Public Use
  Company Number: US-ROCHE-1142575

PATIENT
  Sex: Male

DRUGS (3)
  1. NUTROPIN [Suspect]
     Indication: HYPOTHALAMO-PITUITARY DISORDER
     Route: 065
     Dates: start: 19970728
  2. PREDNISONE [Concomitant]
     Route: 065
  3. LUPRON DEPOT [Concomitant]
     Route: 065

REACTIONS (3)
  - Graft versus host disease [Unknown]
  - Asthenia [Unknown]
  - Rash [Unknown]
